FAERS Safety Report 19722270 (Version 2)
Quarter: 2021Q3

REPORT INFORMATION
  Report Type: Report from Study
  Country: FR (occurrence: FR)
  Receive Date: 20210819
  Receipt Date: 20210825
  Transmission Date: 20211014
  Serious: Yes (Other)
  Sender: FDA-Public Use
  Company Number: FR-GLAXOSMITHKLINE-FR2021EME170955

PATIENT
  Age: 64 Year
  Sex: Female
  Weight: 38 kg

DRUGS (8)
  1. MESTINON [Suspect]
     Active Substance: PYRIDOSTIGMINE BROMIDE
     Indication: CONGENITAL MYASTHENIC SYNDROME
     Dosage: 1 DF, QD
     Dates: start: 2006
  2. 3,4 DIAMINOPYRIDINE [Suspect]
     Active Substance: AMIFAMPRIDINE
     Dosage: 7.5 MG, QID
     Route: 048
     Dates: start: 2015
  3. NEOSTIGMINE. [Suspect]
     Active Substance: NEOSTIGMINE METHYLSULFATE
     Dosage: UNK
     Dates: start: 202103
  4. MESTINON [Concomitant]
     Active Substance: PYRIDOSTIGMINE BROMIDE
     Indication: CONGENITAL MYASTHENIC SYNDROME
     Dosage: 5 DF, 1D
     Dates: start: 2006
  5. NEOSTIGMINE. [Suspect]
     Active Substance: NEOSTIGMINE METHYLSULFATE
     Indication: MYASTHENIA GRAVIS
     Dosage: 15 MG, QID
     Route: 048
     Dates: start: 2010
  6. 3,4 DIAMINOPYRIDINE [Suspect]
     Active Substance: AMIFAMPRIDINE
     Indication: PRODUCT USED FOR UNKNOWN INDICATION
     Dosage: 7.5 MG, Z(5/DAY)
     Dates: start: 2006
  7. MESTINON [Suspect]
     Active Substance: PYRIDOSTIGMINE BROMIDE
     Dosage: 180 NG,QD
     Route: 048
     Dates: start: 2010
  8. SALBUTAMOL SULPHATE [Suspect]
     Active Substance: ALBUTEROL SULFATE
     Indication: MYASTHENIA GRAVIS
     Dosage: 2 MG, TWICE DAILY
     Route: 048
     Dates: start: 201907

REACTIONS (6)
  - Disability [Recovering/Resolving]
  - Condition aggravated [Recovering/Resolving]
  - Anaemia [Unknown]
  - Chest pain [Not Recovered/Not Resolved]
  - General physical health deterioration [Unknown]
  - Prinzmetal angina [Not Recovered/Not Resolved]

NARRATIVE: CASE EVENT DATE: 2016
